FAERS Safety Report 14132253 (Version 1)
Quarter: 2017Q4

REPORT INFORMATION
  Report Type: Spontaneous
  Country: JP (occurrence: JP)
  Receive Date: 20171026
  Receipt Date: 20171026
  Transmission Date: 20180321
  Serious: Yes (Other)
  Sender: FDA-Public Use
  Company Number: JP-MYLANLABS-2017M1066687

PATIENT
  Age: 66 Year
  Sex: Male

DRUGS (3)
  1. PANOBINOSTAT [Suspect]
     Active Substance: PANOBINOSTAT
     Indication: PLASMA CELL MYELOMA
     Dosage: 3-WEEK CYCLES OF 20 MG/DAY ON DAYS 1, 3, 5, 8, 10 AND 12
     Route: 048
  2. BORTEZOMIB [Suspect]
     Active Substance: BORTEZOMIB
     Indication: PLASMA CELL MYELOMA
     Dosage: 3-WEEK CYCLES OF 1.3 MG/M2 ON DAYS 1, 4, 8 AND 11
     Route: 058
  3. DEXAMETHASONE. [Suspect]
     Active Substance: DEXAMETHASONE
     Indication: PLASMA CELL MYELOMA
     Dosage: 3-WEEK CYCLES OF 20 MG/DAY ON DAYS 1, 2, 4, 5, 8, 9, 11 AND 12
     Route: 048

REACTIONS (3)
  - Fatigue [Unknown]
  - Dehydration [Unknown]
  - Nausea [Unknown]
